FAERS Safety Report 8262254-3 (Version None)
Quarter: 2012Q2

REPORT INFORMATION
  Report Type: 
  Country: None (occurrence: None)
  Receive Date: 20120402
  Receipt Date: 20120320
  Transmission Date: 20120825
  Serious: Yes (Life-Threatening)
  Sender: FDA-Public Use
  Company Number: 1234836

PATIENT
  Age: 58 Year
  Sex: Female
  Weight: 42.8 kg

DRUGS (7)
  1. DIPHENHYDRAMINE HCL [Concomitant]
  2. RANITIDINE [Concomitant]
  3. PACLITAXEL [Suspect]
     Indication: OVARIAN CANCER
     Dosage: , ONCE, , INTRAVENOUS
     Route: 042
     Dates: start: 20120316, end: 20120316
  4. PACLITAXEL [Suspect]
     Indication: OVARIAN CANCER
     Dosage: , ONCE, , INTRAVENOUS (NOT OTHERWISE SPECIFIED)
     Route: 042
     Dates: start: 20120316, end: 20120316
  5. LORAZEPAM [Concomitant]
  6. DEXAMETHASONE [Concomitant]
  7. ONDANSETRON [Concomitant]

REACTIONS (6)
  - UNRESPONSIVE TO STIMULI [None]
  - PULSE ABNORMAL [None]
  - OXYGEN SATURATION DECREASED [None]
  - DYSPNOEA [None]
  - TREMOR [None]
  - PULSE PRESSURE DECREASED [None]
